FAERS Safety Report 20391612 (Version 3)
Quarter: 2022Q1

REPORT INFORMATION
  Report Type: Report from Study
  Country: US (occurrence: US)
  Receive Date: 20220128
  Receipt Date: 20220201
  Transmission Date: 20220423
  Serious: No
  Sender: FDA-Public Use
  Company Number: US-NOVARTISTESTPH-NVSC2022US018176

PATIENT
  Sex: Male

DRUGS (1)
  1. KESIMPTA [Suspect]
     Active Substance: OFATUMUMAB
     Indication: Multiple sclerosis
     Dosage: UNK UNK, UNKNOWN
     Route: 065

REACTIONS (6)
  - Circumstance or information capable of leading to medication error [Unknown]
  - Hypoaesthesia [Unknown]
  - Gait disturbance [Unknown]
  - Tremor [Unknown]
  - Insomnia [Unknown]
  - Malaise [Unknown]
